FAERS Safety Report 23381840 (Version 1)
Quarter: 2024Q1

REPORT INFORMATION
  Report Type: Spontaneous
  Country: None (occurrence: US)
  Receive Date: 20240109
  Receipt Date: 20240109
  Transmission Date: 20240410
  Serious: No
  Sender: FDA-Public Use
  Company Number: US-Harrow Eye-2150697

PATIENT
  Sex: Female

DRUGS (1)
  1. VERKAZIA [Suspect]
     Active Substance: CYCLOSPORINE
     Indication: Vernal keratoconjunctivitis

REACTIONS (2)
  - Influenza [Unknown]
  - Cough [Unknown]
